FAERS Safety Report 4952123-6 (Version None)
Quarter: 2006Q1

REPORT INFORMATION
  Report Type: 
  Country: None (occurrence: None)
  Receive Date: 20060320
  Receipt Date: 20060302
  Transmission Date: 20060701
  Serious: Yes (Life-Threatening, Hospitalization)
  Sender: FDA-Public Use
  Company Number: ES-2006-004493

PATIENT
  Age: 45 Year
  Sex: Male
  Weight: 74 kg

DRUGS (5)
  1. QUADRAMET [Suspect]
     Dosage: 74 ML 1 INTRAVENOUS
     Route: 042
     Dates: start: 20060207, end: 20060207
  2. DIAZEPAM [Concomitant]
  3. DEXAMETHASONE TAB [Concomitant]
  4. DIPYRONE TAB [Concomitant]
  5. MORPHINE SULFATE [Concomitant]

REACTIONS (4)
  - BLOOD CREATININE INCREASED [None]
  - HAEMATURIA [None]
  - HAEMOGLOBIN DECREASED [None]
  - THROMBOCYTOPENIA [None]
